FAERS Safety Report 5439292-9 (Version None)
Quarter: 2007Q3

REPORT INFORMATION
  Report Type: 
  Country: None (occurrence: None)
  Receive Date: 20070831
  Receipt Date: 20070823
  Transmission Date: 20080115
  Serious: Yes (Hospitalization)
  Sender: FDA-Public Use
  Company Number: US-GILEAD-2007-0013052

PATIENT
  Sex: Female
  Weight: 72.64 kg

DRUGS (5)
  1. LETAIRIS [Suspect]
     Route: 048
     Dates: start: 20070718
  2. CLONAZEPAM [Concomitant]
     Indication: RESTLESS LEGS SYNDROME
     Route: 048
  3. DARVOCET [Concomitant]
     Route: 048
  4. DILAUDID [Concomitant]
     Indication: RESTLESS LEGS SYNDROME
  5. IRON [Concomitant]
     Route: 048

REACTIONS (1)
  - FLUID OVERLOAD [None]
